FAERS Safety Report 4957198-6 (Version None)
Quarter: 2006Q1

REPORT INFORMATION
  Report Type: 
  Country: None (occurrence: None)
  Receive Date: 20060323
  Receipt Date: 20060316
  Transmission Date: 20060701
  Serious: No
  Sender: FDA-Public Use
  Company Number: 200602033

PATIENT
  Age: 70 Year
  Sex: Female

DRUGS (4)
  1. RESTASIS [Suspect]
     Indication: DRY EYE
     Dosage: 2 DROP BID EYE
     Route: 047
     Dates: start: 20040701, end: 20051201
  2. VOLTARAN [Concomitant]
  3. ALAMAST [Concomitant]
  4. VASOTEC [Concomitant]

REACTIONS (1)
  - LYMPHADENECTOMY [None]
